FAERS Safety Report 4614381-7 (Version None)
Quarter: 2005Q2

REPORT INFORMATION
  Report Type: 
  Country: None (occurrence: None)
  Receive Date: 20050307
  Receipt Date: 20050131
  Transmission Date: 20051028
  Serious: Yes (Other)
  Sender: FDA-Public Use
  Company Number: USA050189496

PATIENT
  Sex: Female

DRUGS (3)
  1. ALIMITA (PEMETREXED) [Suspect]
     Indication: NON-SMALL CELL LUNG CANCER
     Dates: start: 20041201, end: 20050106
  2. VITAMIN B12 FOR INJECTION (CYANOCOBALAMIN) [Concomitant]
  3. FOLIC ACID [Concomitant]

REACTIONS (1)
  - DISEASE PROGRESSION [None]
